FAERS Safety Report 15579705 (Version 1)
Quarter: 2018Q4

REPORT INFORMATION
  Report Type: Spontaneous
  Country: US (occurrence: US)
  Receive Date: 20181102
  Receipt Date: 20181102
  Transmission Date: 20190205
  Serious: Yes (Other)
  Sender: FDA-Public Use
  Company Number: None

PATIENT
  Age: 66 Year
  Sex: Female
  Weight: 74.25 kg

DRUGS (1)
  1. AZELASTINE HCL [Suspect]
     Active Substance: AZELASTINE HYDROCHLORIDE
     Indication: NASAL CONGESTION
     Dosage: ?          OTHER STRENGTH:MCG/SPRAY;QUANTITY:2 SPRAY(S);?
     Route: 055
     Dates: start: 20181017, end: 20181102

REACTIONS (6)
  - Vision blurred [None]
  - Mydriasis [None]
  - Headache [None]
  - Visual impairment [None]
  - Intraocular pressure increased [None]
  - Eye pain [None]

NARRATIVE: CASE EVENT DATE: 20181026
